FAERS Safety Report 6126380-7 (Version None)
Quarter: 2009Q1

REPORT INFORMATION
  Report Type: 
  Country: None (occurrence: None)
  Receive Date: 20090320
  Receipt Date: 20090311
  Transmission Date: 20090719
  Serious: Yes (Hospitalization)
  Sender: FDA-Public Use
  Company Number: GR-AVENTIS-200912602GDDC

PATIENT
  Age: 61 Year
  Sex: Male
  Weight: 103 kg

DRUGS (10)
  1. DOCETAXEL [Suspect]
     Indication: NON-SMALL CELL LUNG CANCER
     Route: 042
     Dates: start: 20081229, end: 20081229
  2. ERLOTINIB [Suspect]
     Indication: NON-SMALL CELL LUNG CANCER
     Route: 048
     Dates: start: 20090101, end: 20090112
  3. SINTROM [Suspect]
     Route: 048
     Dates: start: 20040101, end: 20090105
  4. LOBIVON [Concomitant]
     Route: 048
     Dates: start: 20040101, end: 20090107
  5. FRUMIL [Concomitant]
     Dosage: DOSE: 7.5 MG 3 TIMES A WEEK
     Dates: start: 20040101, end: 20090107
  6. CARDIOVASCULAR SYSTEM DRUGS [Concomitant]
     Route: 048
     Dates: start: 20040101, end: 20090107
  7. CIPRALEX [Concomitant]
     Indication: DEPRESSION
     Route: 048
     Dates: start: 20040101, end: 20090107
  8. SPIRIVA [Concomitant]
     Indication: CHRONIC OBSTRUCTIVE PULMONARY DISEASE
     Route: 055
     Dates: start: 20070101, end: 20090107
  9. SINTHROME [Concomitant]
     Route: 048
     Dates: start: 20040101, end: 20090107
  10. UNIMAZOLE [Concomitant]
     Indication: HYPERTHYROIDISM
     Route: 048
     Dates: end: 20090107

REACTIONS (2)
  - FEBRILE NEUTROPENIA [None]
  - INTERNATIONAL NORMALISED RATIO INCREASED [None]
